FAERS Safety Report 10220697 (Version 1)
Quarter: 2014Q2

REPORT INFORMATION
  Report Type: Spontaneous
  Country: US (occurrence: US)
  Receive Date: 20140606
  Receipt Date: 20140606
  Transmission Date: 20141212
  Serious: Yes (Other)
  Sender: FDA-Public Use
  Company Number: US-PFIZER INC-2014154891

PATIENT
  Age: 35 Year
  Sex: Male
  Weight: 70.3 kg

DRUGS (1)
  1. ADVIL [Suspect]
     Indication: ABDOMINAL PAIN UPPER
     Dosage: 6 DF, 2X/DAY(4 TABLETS IN MORNING AND 4 TABLETS IN EVENING)
     Route: 048
     Dates: start: 201404

REACTIONS (2)
  - Overdose [Unknown]
  - Haematochezia [Unknown]
